FAERS Safety Report 16008056 (Version 1)
Quarter: 2019Q1

REPORT INFORMATION
  Report Type: Spontaneous
  Country: US (occurrence: US)
  Receive Date: 20190226
  Receipt Date: 20190226
  Transmission Date: 20190418
  Serious: Yes (Hospitalization)
  Sender: FDA-Public Use
  Company Number: US-JNJFOC-20190225948

PATIENT
  Age: 36 Year
  Sex: Female
  Weight: 110.22 kg

DRUGS (2)
  1. CARBAMAZEPINE. [Interacting]
     Active Substance: CARBAMAZEPINE
     Indication: DEPRESSION
     Route: 065
     Dates: start: 2015
  2. XARELTO [Suspect]
     Active Substance: RIVAROXABAN
     Indication: PULMONARY THROMBOSIS
     Route: 048
     Dates: start: 2017

REACTIONS (6)
  - Coma [Recovered/Resolved]
  - Electrolyte depletion [Unknown]
  - Memory impairment [Unknown]
  - Blood sodium decreased [Recovering/Resolving]
  - Brain oedema [Unknown]
  - Drug interaction [Unknown]

NARRATIVE: CASE EVENT DATE: 20190206
